FAERS Safety Report 6995925-7 (Version None)
Quarter: 2010Q3

REPORT INFORMATION
  Report Type: 
  Country: None (occurrence: None)
  Receive Date: 20100918
  Receipt Date: 20081114
  Transmission Date: 20110219
  Serious: No
  Sender: FDA-Public Use
  Company Number: US-WYE-H06855508

PATIENT
  Sex: Female
  Weight: 68.1 kg

DRUGS (2)
  1. EFFEXOR XR [Suspect]
     Indication: DEPRESSION
     Dosage: UNKNOWN DAILY DOSE
     Route: 048
     Dates: start: 20020101
  2. EFFEXOR XR [Suspect]
     Dosage: ^SELF-TAPERED^
     Dates: end: 20040101

REACTIONS (3)
  - DRUG WITHDRAWAL SYNDROME [None]
  - INTENTIONAL DRUG MISUSE [None]
  - TINNITUS [None]
